FAERS Safety Report 9889096 (Version 1)
Quarter: 2014Q1

REPORT INFORMATION
  Report Type: Spontaneous
  Country: US (occurrence: None)
  Receive Date: 20140207
  Receipt Date: 20140207
  Transmission Date: 20141002
  Serious: Yes (Other)
  Sender: FDA-Public Use
  Company Number: 2014AP000979

PATIENT
  Sex: Female
  Weight: 77.11 kg

DRUGS (1)
  1. NICOTINE TRANSDERMAL SYSTEM [Suspect]
     Indication: SMOKING CESSATION THERAPY
     Dosage: ;TDER
     Route: 062

REACTIONS (1)
  - Hypersensitivity [None]
